FAERS Safety Report 8910644 (Version 2)
Quarter: 2012Q4

REPORT INFORMATION
  Report Type: Spontaneous
  Country: FR (occurrence: None)
  Receive Date: 20121108
  Receipt Date: 20121121
  Transmission Date: 20130627
  Serious: Yes (Hospitalization, Other)
  Sender: FDA-Public Use
  Company Number: VAL_00957_2012

PATIENT
  Age: 34 Year
  Sex: Female

DRUGS (1)
  1. METHERGINE [Suspect]
     Indication: PRODUCT USED FOR UNKNOWN INDICATION
     Dosage: (0.2 mg,  a single dose  Intravenous bolus)
     Route: 040
     Dates: start: 19800802, end: 19800802

REACTIONS (12)
  - Headache [None]
  - Vomiting [None]
  - Blood pressure increased [None]
  - Grand mal convulsion [None]
  - Somnolence [None]
  - Confusional state [None]
  - General physical health deterioration [None]
  - Coma [None]
  - Decerebration [None]
  - Electroencephalogram abnormal [None]
  - Carotid artery stenosis [None]
  - Exposure during pregnancy [None]
